FAERS Safety Report 6407438-1 (Version None)
Quarter: 2009Q4

REPORT INFORMATION
  Report Type: 
  Country: None (occurrence: None)
  Receive Date: 20091020
  Receipt Date: 20091013
  Transmission Date: 20100525
  Serious: Yes (Hospitalization)
  Sender: FDA-Public Use
  Company Number: LB-B.I. PHARMACEUTICALS,INC./RIDGEFIELD-2009-DE-06511GD

PATIENT

DRUGS (12)
  1. CLONIDINE [Suspect]
     Indication: NERVE BLOCK
     Dosage: 0.95 MCG/KG
  2. BUPIVACAINE [Suspect]
     Indication: NERVE BLOCK
     Dosage: 1.79 MG/KG
  3. EPINEPHRINE [Suspect]
     Indication: NERVE BLOCK
     Dosage: 1/200000
  4. PARACETAMOL [Concomitant]
     Indication: PROCEDURAL PAIN
     Dosage: INFUSION OF 15 MG/KG
     Route: 042
  5. PARACETAMOL [Concomitant]
     Dosage: 15 MG/KG PER 6 H
     Route: 048
  6. PROPOFOL [Concomitant]
     Indication: INDUCTION OF ANAESTHESIA
     Dosage: 2 - 5 MG/KG
  7. FENTANYL CITRATE [Concomitant]
     Indication: INDUCTION OF ANAESTHESIA
     Dosage: 1 MCG/KG
  8. XYLOCAINE [Concomitant]
     Indication: INDUCTION OF ANAESTHESIA
     Dosage: 1 MG/KG
  9. SEVOFLURANE [Concomitant]
     Indication: INDUCTION AND MAINTENANCE OF ANAESTHESIA
     Route: 055
  10. NITROUS OXIDE [Concomitant]
     Indication: MAINTENANCE OF ANAESTHESIA
     Route: 055
  11. NSAIDS [Concomitant]
     Indication: PROCEDURAL PAIN
  12. CEFAZOLIN [Concomitant]
     Indication: ANTIBIOTIC PROPHYLAXIS
     Dosage: 40 MG/KG

REACTIONS (1)
  - NEUROMUSCULAR BLOCK PROLONGED [None]
